FAERS Safety Report 16751375 (Version 2)
Quarter: 2020Q1

REPORT INFORMATION
  Report Type: Spontaneous
  Country: RO (occurrence: RO)
  Receive Date: 20190828
  Receipt Date: 20200131
  Transmission Date: 20200409
  Serious: Yes (Hospitalization)
  Sender: FDA-Public Use
  Company Number: RO-ABBVIE-19P-135-2898221-00

PATIENT
  Age: 42 Year
  Sex: Male

DRUGS (9)
  1. OMBITASVIR/PARITAPREVIR/RITONAVIR [Suspect]
     Active Substance: OMBITASVIR\PARITAPREVIR\RITONAVIR
     Indication: HEPATITIS C
     Dosage: 12.5/75/50 MG, IN THE MORNING, WITH FOOD.
     Route: 048
  2. PREDNISONE. [Concomitant]
     Active Substance: PREDNISONE
  3. TACROLIMUS. [Interacting]
     Active Substance: TACROLIMUS
     Route: 065
  4. PREDNISONE. [Concomitant]
     Active Substance: PREDNISONE
     Indication: IMMUNOSUPPRESSANT DRUG THERAPY
  5. MOFETIL MYCOPHENOLATE [Concomitant]
  6. DASABUVIR [Interacting]
     Active Substance: DASABUVIR
     Indication: HEPATITIS C
     Dosage: IN THE MORNING AND EVENING, DURING MEALS.
     Route: 048
  7. TACROLIMUS. [Interacting]
     Active Substance: TACROLIMUS
     Indication: IMMUNOSUPPRESSANT DRUG THERAPY
     Route: 048
  8. TACROLIMUS. [Interacting]
     Active Substance: TACROLIMUS
     Route: 048
  9. MOFETIL MYCOPHENOLATE [Concomitant]
     Indication: IMMUNOSUPPRESSANT DRUG THERAPY

REACTIONS (3)
  - Immunosuppressant drug level increased [Recovered/Resolved]
  - Hyperglycaemia [Recovered/Resolved]
  - Drug interaction [Unknown]
